FAERS Safety Report 7584119-2 (Version None)
Quarter: 2011Q2

REPORT INFORMATION
  Report Type: 
  Country: None (occurrence: None)
  Receive Date: 20110630
  Receipt Date: 20110622
  Transmission Date: 20111010
  Serious: Yes (Hospitalization)
  Sender: FDA-Public Use
  Company Number: US-B.I. PHARMACEUTICALS,INC./RIDGEFIELD-2011-BP-12800BP

PATIENT
  Sex: Male
  Weight: 77.3 kg

DRUGS (8)
  1. PRADAXA [Suspect]
     Indication: ATRIAL FIBRILLATION
  2. NIASPAN [Concomitant]
  3. GUAIFENESIN [Concomitant]
  4. FLOMAX [Concomitant]
  5. ZIAC [Concomitant]
  6. LOTREL [Concomitant]
  7. ONGLYZA [Concomitant]
  8. ASPIRIN [Concomitant]

REACTIONS (3)
  - PNEUMONIA [None]
  - THROMBOCYTOPENIA [None]
  - HAEMOPTYSIS [None]
